FAERS Safety Report 11027410 (Version 2)
Quarter: 2015Q3

REPORT INFORMATION
  Report Type: Report from Study
  Country: US (occurrence: US)
  Receive Date: 20150414
  Receipt Date: 20150812
  Transmission Date: 20151125
  Serious: Yes (Death, Hospitalization, Disabling)
  Sender: FDA-Public Use
  Company Number: US-SA-2015SA045253

PATIENT
  Age: 64 Year
  Sex: Female
  Weight: 59.6 kg

DRUGS (12)
  1. INVESTIGATIONAL DRUG [Suspect]
     Active Substance: INVESTIGATIONAL PRODUCT
     Indication: PANCREATIC CARCINOMA METASTATIC
     Dosage: FORM- LIQUID
     Route: 042
     Dates: start: 20150223
  2. INVESTIGATIONAL DRUG [Suspect]
     Active Substance: INVESTIGATIONAL PRODUCT
     Indication: PANCREATIC CARCINOMA METASTATIC
     Dosage: FORM- LIQUID
     Route: 042
     Dates: end: 20150305
  3. METOPROLOL TARTRATE. [Concomitant]
     Active Substance: METOPROLOL TARTRATE
  4. ELOXATIN [Suspect]
     Active Substance: OXALIPLATIN
     Indication: PANCREATIC CARCINOMA METASTATIC
     Route: 042
     Dates: start: 20150224, end: 20150226
  5. LEUCOVORIN. [Suspect]
     Active Substance: LEUCOVORIN
     Indication: PANCREATIC CARCINOMA METASTATIC
     Route: 042
     Dates: start: 20150224, end: 20150226
  6. FLUOROURACIL. [Suspect]
     Active Substance: FLUOROURACIL
     Indication: PANCREATIC CARCINOMA METASTATIC
     Route: 042
     Dates: start: 20150224
  7. HYDROMORPHONE HYDROCHLORIDE. [Concomitant]
     Active Substance: HYDROMORPHONE HYDROCHLORIDE
  8. FLUOROURACIL. [Suspect]
     Active Substance: FLUOROURACIL
     Indication: PANCREATIC CARCINOMA METASTATIC
     Route: 042
     Dates: start: 20150224
  9. PANTOPRAZOLE SODIUM. [Concomitant]
     Active Substance: PANTOPRAZOLE SODIUM
  10. ELOXATIN [Suspect]
     Active Substance: OXALIPLATIN
     Indication: PANCREATIC CARCINOMA METASTATIC
     Route: 042
     Dates: end: 20150305
  11. FLUOROURACIL. [Suspect]
     Active Substance: FLUOROURACIL
     Indication: PANCREATIC CARCINOMA METASTATIC
     Route: 042
     Dates: end: 20150305
  12. LEUCOVORIN. [Suspect]
     Active Substance: LEUCOVORIN
     Indication: PANCREATIC CARCINOMA METASTATIC
     Route: 042
     Dates: end: 20150305

REACTIONS (6)
  - Aspiration [Not Recovered/Not Resolved]
  - Sepsis [Fatal]
  - White blood cell count decreased [Not Recovered/Not Resolved]
  - Platelet count decreased [Not Recovered/Not Resolved]
  - Failure to thrive [Not Recovered/Not Resolved]
  - Confusional state [Not Recovered/Not Resolved]

NARRATIVE: CASE EVENT DATE: 20150301
